FAERS Safety Report 4717795-X (Version None)
Quarter: 2005Q3

REPORT INFORMATION
  Report Type: 
  Country: None (occurrence: None)
  Receive Date: 20050715
  Receipt Date: 20041021
  Transmission Date: 20060218
  Serious: Yes (Hospitalization)
  Sender: FDA-Public Use
  Company Number: 2004-00684

PATIENT
  Age: 60 Year
  Sex: Female

DRUGS (1)
  1. INTEGRILIN [Suspect]
     Indication: ANGINA UNSTABLE
     Dates: start: 20041008

REACTIONS (1)
  - HAEMORRHAGE INTRACRANIAL [None]
